FAERS Safety Report 5676212-6 (Version None)
Quarter: 2008Q1

REPORT INFORMATION
  Report Type: 
  Country: None (occurrence: None)
  Receive Date: 20080321
  Receipt Date: 20080311
  Transmission Date: 20080703
  Serious: Yes (Other)
  Sender: FDA-Public Use
  Company Number: ES-PFIZER INC-2007037504

PATIENT
  Sex: Female
  Weight: 55 kg

DRUGS (6)
  1. MARAVIROC [Suspect]
     Indication: HIV INFECTION
     Route: 048
     Dates: start: 20050615, end: 20060612
  2. MARAVIROC [Suspect]
     Route: 048
     Dates: start: 20060712, end: 20070517
  3. INVIRASE [Concomitant]
     Route: 048
  4. NORVIR [Concomitant]
     Route: 048
  5. ABACAVIR [Concomitant]
     Route: 048
     Dates: start: 20050615, end: 20070517
  6. TENOFOVIR [Concomitant]
     Route: 048
     Dates: start: 20030508, end: 20070517

REACTIONS (1)
  - NON-HODGKIN'S LYMPHOMA [None]
